FAERS Safety Report 7070132-0 (Version None)
Quarter: 2010Q4

REPORT INFORMATION
  Report Type: 
  Country: None (occurrence: None)
  Receive Date: 20101028
  Receipt Date: 20100830
  Transmission Date: 20110411
  Serious: No
  Sender: FDA-Public Use
  Company Number: US-WYE-H17292610

PATIENT

DRUGS (1)
  1. ADVIL [Suspect]

REACTIONS (2)
  - ENERGY INCREASED [None]
  - THERAPEUTIC RESPONSE UNEXPECTED [None]
